FAERS Safety Report 5693211-9 (Version None)
Quarter: 2008Q2

REPORT INFORMATION
  Report Type: 
  Country: None (occurrence: None)
  Receive Date: 20080403
  Receipt Date: 20080323
  Transmission Date: 20081010
  Serious: Yes (Hospitalization, Other)
  Sender: FDA-Public Use
  Company Number: PHHY2008BR02714

PATIENT
  Sex: Female

DRUGS (1)
  1. ACLASTA [Suspect]
     Dosage: UNK, ONCE/SINGLE
     Dates: start: 20071201, end: 20071201

REACTIONS (14)
  - ASPIRATION PLEURAL CAVITY [None]
  - AUTOIMMUNE DISORDER [None]
  - CARDIO-RESPIRATORY ARREST [None]
  - DYSPNOEA [None]
  - MALAISE [None]
  - MIXED CONNECTIVE TISSUE DISEASE [None]
  - NAUSEA [None]
  - PERICARDIAL DRAINAGE [None]
  - PYREXIA [None]
  - RAYNAUD'S PHENOMENON [None]
  - SOFT TISSUE DISORDER [None]
  - SURGERY [None]
  - SWELLING [None]
  - VASCULITIS NECROTISING [None]
